FAERS Safety Report 8852120 (Version 3)
Quarter: 2012Q4

REPORT INFORMATION
  Report Type: 
  Country: US (occurrence: US)
  Receive Date: 20121022
  Receipt Date: 20121212
  Transmission Date: 20130627
  Serious: Yes (Hospitalization, Other)
  Sender: FDA-Public Use
  Company Number: US-PFIZER INC-2012258649

PATIENT
  Age: 49 Year
  Sex: Male
  Weight: 81.3 kg

DRUGS (4)
  1. CRIZOTINIB [Suspect]
     Indication: NON-SMALL CELL LUNG CANCER METASTATIC
     Dosage: 250 mg, 2x/day
     Dates: start: 20120920, end: 20121014
  2. LOVENOX [Concomitant]
     Indication: CHRONIC PULMONARY EMBOLISM
     Dosage: 120 mg, 1x/day
     Route: 058
  3. LOVENOX [Concomitant]
     Indication: DVT
     Dosage: 100 versus 150 mg, Daily
     Route: 058
  4. LOVENOX [Concomitant]
     Dosage: 160 mg, Daily
     Route: 048

REACTIONS (9)
  - Interstitial lung disease [Recovered/Resolved]
  - Pulmonary oedema [Recovered/Resolved]
  - Respiratory failure [Recovered/Resolved]
  - Renal failure [Recovering/Resolving]
  - Polyuria [Not Recovered/Not Resolved]
  - Hypoxia [Unknown]
  - Asthenia [Unknown]
  - Respiratory acidosis [Unknown]
  - Visual impairment [Unknown]
